FAERS Safety Report 9501896 (Version 1)
Quarter: 2013Q3

REPORT INFORMATION
  Report Type: Spontaneous
  Country: US (occurrence: US)
  Receive Date: 20130905
  Receipt Date: 20130905
  Transmission Date: 20140515
  Serious: No
  Sender: FDA-Public Use
  Company Number: US-ASTRAZENECA-2013SE47594

PATIENT
  Sex: Female
  Weight: 99.8 kg

DRUGS (5)
  1. SYMBICORT [Suspect]
     Indication: ASTHMA
     Dosage: 320 MCG, TWO TIMES  DAY
     Route: 055
     Dates: start: 201303
  2. SYMBICORT [Suspect]
     Indication: CHRONIC OBSTRUCTIVE PULMONARY DISEASE
     Dosage: 320 MCG, TWO TIMES  DAY
     Route: 055
     Dates: start: 201303
  3. SINGULAIR [Concomitant]
  4. SPIREVA [Concomitant]
  5. ANTIHYPERTENSIVE [Concomitant]

REACTIONS (5)
  - Nasal congestion [Unknown]
  - Sinusitis [Unknown]
  - Sinus disorder [Unknown]
  - Dysphonia [Unknown]
  - Therapeutic response unexpected [Unknown]
